FAERS Safety Report 4695654-9 (Version None)
Quarter: 2005Q2

REPORT INFORMATION
  Report Type: 
  Country: None (occurrence: None)
  Receive Date: 20050617
  Receipt Date: 20050617
  Transmission Date: 20051028
  Serious: Yes (Other)
  Sender: FDA-Public Use
  Company Number: None

PATIENT
  Age: 79 Year
  Sex: Male
  Weight: 60 kg

DRUGS (9)
  1. FOSINOPRIL SODIUM [Suspect]
  2. GEMFIBROZIL [Concomitant]
  3. FELODIPINE [Concomitant]
  4. QUETIAPINE FUMARATE [Concomitant]
  5. DOCUSATE NA [Concomitant]
  6. TERAZODIN HCL [Concomitant]
  7. TERAZOSIN HCL [Concomitant]
  8. QUETIAPINE FUMARATE [Concomitant]
  9. ASPIRIN [Concomitant]

REACTIONS (1)
  - COUGH [None]
